FAERS Safety Report 24096883 (Version 1)
Quarter: 2024Q3

REPORT INFORMATION
  Report Type: Spontaneous
  Country: US (occurrence: US)
  Receive Date: 20240716
  Receipt Date: 20240716
  Transmission Date: 20241017
  Serious: No
  Sender: GRIFOLS
  Company Number: US-IGSA-BIG0025386

PATIENT
  Sex: Female

DRUGS (3)
  1. GAMUNEX-C [Suspect]
     Active Substance: HUMAN IMMUNOGLOBULIN G
     Indication: Antibody test abnormal
     Dosage: UNK UNKNOWN, UNKNOWN
     Route: 042
  2. DIPHENHYDRAMINE [Concomitant]
     Active Substance: DIPHENHYDRAMINE
     Indication: Premedication
  3. ONDANSETRON [Concomitant]
     Active Substance: ONDANSETRON
     Indication: Premedication

REACTIONS (1)
  - Urticaria [Recovered/Resolved]
